FAERS Safety Report 5336934-3 (Version None)
Quarter: 2007Q2

REPORT INFORMATION
  Report Type: 
  Country: None (occurrence: None)
  Receive Date: 20070315
  Receipt Date: 20060516
  Transmission Date: 20071010
  Serious: Yes (Other)
  Sender: FDA-Public Use
  Company Number: PHEH2006US06424

PATIENT
  Age: 85 Year
  Sex: Female

DRUGS (1)
  1. TRILEPTAL [Suspect]
     Dosage: ORAL
     Route: 048

REACTIONS (2)
  - HYPONATRAEMIA [None]
  - NAUSEA [None]
